FAERS Safety Report 17481824 (Version 2)
Quarter: 2021Q2

REPORT INFORMATION
  Report Type: Spontaneous
  Country: FR (occurrence: FR)
  Receive Date: 20200302
  Receipt Date: 20210412
  Transmission Date: 20210716
  Serious: Yes (Other)
  Sender: FDA-Public Use
  Company Number: FR-AUROBINDO-AUR-APL-2019-106644

PATIENT
  Age: 9 Year
  Sex: Male

DRUGS (48)
  1. AMOXICILLIN. [Suspect]
     Active Substance: AMOXICILLIN
     Indication: ANTIBIOTIC PROPHYLAXIS
     Dosage: UNK
     Route: 065
  2. FLUDARABINE [Suspect]
     Active Substance: FLUDARABINE PHOSPHATE
     Indication: ACUTE MYELOID LEUKAEMIA
     Dosage: 30 MILLIGRAM/SQ. METER, ONCE A DAY, D2 TO D6
     Route: 065
  3. DAUNORUBICIN [Suspect]
     Active Substance: DAUNORUBICIN
     Indication: ACUTE MYELOID LEUKAEMIA
     Dosage: 40 MILLIGRAM/SQ. METER, ONCE A DAY
     Route: 065
  4. NOVANTRONE [Suspect]
     Active Substance: MITOXANTRONE HYDROCHLORIDE
     Indication: ACUTE MYELOID LEUKAEMIA
     Dosage: 10 MILLIGRAM/SQ. METER, ONCE A DAY, CYCLE
     Route: 065
  5. PROGRAF [Suspect]
     Active Substance: TACROLIMUS
     Indication: GRAFT VERSUS HOST DISEASE
  6. AMPHOTERICIN B. [Concomitant]
     Active Substance: AMPHOTERICIN B
     Indication: PRODUCT USED FOR UNKNOWN INDICATION
     Dosage: UNK
     Route: 065
  7. ANTITHYMOCYTE IMMUNOGLOBULIN [Suspect]
     Active Substance: THYMOCYTE IMMUNE GLOBULIN NOS
     Indication: PRODUCT USED FOR UNKNOWN INDICATION
     Dosage: UNK
     Route: 065
  8. ARACYTINE [Suspect]
     Active Substance: CYTARABINE
     Indication: ACUTE MYELOID LEUKAEMIA
     Dosage: 2 GRAM PER SQUARE METRE, ONCE A DAY (FROM D2 TO D6), CYCLE
     Route: 065
  9. BASILIXIMAB [Suspect]
     Active Substance: BASILIXIMAB
     Indication: CHRONIC GRAFT VERSUS HOST DISEASE IN INTESTINE
  10. GRANULOCYTE COLONY STIMULATING FACTOR [Suspect]
     Active Substance: GRANULOCYTE COLONY-STIMULATING FACTOR NOS
     Indication: ACUTE MYELOID LEUKAEMIA
     Dosage: UNK UNK, CYCLICAL, , FROM D1 TO D6
     Route: 065
  11. MYCOPHENOLATE MOFETIL. [Suspect]
     Active Substance: MYCOPHENOLATE MOFETIL
     Indication: IMMUNOSUPPRESSION
     Dosage: UNK
     Route: 065
  12. RITUXIMAB. [Suspect]
     Active Substance: RITUXIMAB
     Indication: GRAFT VERSUS HOST DISEASE IN LUNG
  13. ARACYTINE [Suspect]
     Active Substance: CYTARABINE
     Dosage: 3 GRAM PER SQUARE METRE, TWO TIMES A DAY, AT D1, D2, D8, D9 CYCLE
     Route: 065
  14. ARACYTINE [Suspect]
     Active Substance: CYTARABINE
     Dosage: 3 GRAM PER SQUARE METRE, TWO TIMES A DAY, CYCLE
     Route: 065
  15. CICLOSPORIN [Suspect]
     Active Substance: CYCLOSPORINE
     Indication: GRAFT VERSUS HOST DISEASE
     Dosage: UNK
     Route: 065
  16. DAUNORUBICIN [Suspect]
     Active Substance: DAUNORUBICIN
     Dosage: 40 MILLIGRAM/SQ. METER, CYCLICAL
     Route: 065
  17. IDARUBICIN [Suspect]
     Active Substance: IDARUBICIN
     Dosage: 8 MILLIGRAM/SQ. METER, CYCLICAL, ON D2, D4, J6
     Route: 065
  18. METHOTREXATE. [Suspect]
     Active Substance: METHOTREXATE
     Indication: GRAFT VERSUS HOST DISEASE
     Dosage: UNK
     Route: 065
  19. RITUXIMAB. [Suspect]
     Active Substance: RITUXIMAB
     Indication: CHRONIC GRAFT VERSUS HOST DISEASE IN SKIN
  20. THYMOGLOBULINE [Suspect]
     Active Substance: LAPINE T-LYMPHOCYTE IMMUNE GLOBULIN
     Indication: GRAFT VERSUS HOST DISEASE
     Dosage: UNK
     Route: 065
  21. CASPOFUNGIN [Concomitant]
     Active Substance: CASPOFUNGIN
     Indication: PRODUCT USED FOR UNKNOWN INDICATION
     Dosage: UNK
     Route: 065
  22. ARACYTINE [Suspect]
     Active Substance: CYTARABINE
     Indication: CHEMOTHERAPY
     Dosage: 200 MILLIGRAM/SQ. METER, ONCE A DAY, CYCLE
     Route: 065
  23. BASILIXIMAB [Suspect]
     Active Substance: BASILIXIMAB
     Indication: IMMUNOSUPPRESSION
     Dosage: UNK
     Route: 065
  24. CYCLOPHOSPHAMIDE. [Suspect]
     Active Substance: CYCLOPHOSPHAMIDE
     Indication: PRODUCT USED FOR UNKNOWN INDICATION
     Dosage: 200 MILLIGRAM/KILOGRAM, ONCE A DAY (50 MILLIGRAM/KILOGRAM, QID)
     Route: 065
  25. MYCOPHENOLATE MOFETIL. [Suspect]
     Active Substance: MYCOPHENOLATE MOFETIL
     Indication: ACUTE GRAFT VERSUS HOST DISEASE IN INTESTINE
  26. MYCOPHENOLATE MOFETIL. [Suspect]
     Active Substance: MYCOPHENOLATE MOFETIL
     Indication: ACUTE GRAFT VERSUS HOST DISEASE IN SKIN
  27. ACICLOVIR [Concomitant]
     Active Substance: ACYCLOVIR
     Indication: PRODUCT USED FOR UNKNOWN INDICATION
     Dosage: UNK
     Route: 065
  28. BETAMETHASONE SODIUM PHOSPHATE [Concomitant]
     Active Substance: BETAMETHASONE SODIUM PHOSPHATE
     Indication: PRODUCT USED FOR UNKNOWN INDICATION
     Dosage: UNK
     Route: 065
  29. AMSACRINE [Suspect]
     Active Substance: AMSACRINE
     Indication: PRODUCT USED FOR UNKNOWN INDICATION
     Dosage: 100 MILLIGRAM/SQ. METER, TWO TIMES A DAY, CYCLE
     Route: 065
  30. INFLIXIMAB [Suspect]
     Active Substance: INFLIXIMAB
     Indication: IMMUNOSUPPRESSION
     Dosage: UNK
     Route: 065
  31. PROGRAF [Suspect]
     Active Substance: TACROLIMUS
     Indication: IMMUNOSUPPRESSION
     Dosage: 0.5 MILLIGRAM, TWO TIMES A DAY
     Route: 048
     Dates: start: 200906, end: 20101014
  32. RITUXIMAB. [Suspect]
     Active Substance: RITUXIMAB
     Indication: CHRONIC GRAFT VERSUS HOST DISEASE IN INTESTINE
  33. VORICONAZOLE. [Concomitant]
     Active Substance: VORICONAZOLE
     Indication: PRODUCT USED FOR UNKNOWN INDICATION
     Dosage: UNK
     Route: 065
  34. INFLIXIMAB [Suspect]
     Active Substance: INFLIXIMAB
     Indication: CHRONIC GRAFT VERSUS HOST DISEASE IN SKIN
  35. LEUNASE [Suspect]
     Active Substance: ASPARAGINASE
     Indication: ACUTE MYELOID LEUKAEMIA
     Dosage: UNK, ONCE A DAY (6000 U/M2/DAY D2, D9)
     Route: 065
  36. ZOVIRAX [Suspect]
     Active Substance: ACYCLOVIR
     Indication: PRODUCT USED FOR UNKNOWN INDICATION
     Dosage: UNK
     Route: 065
  37. TOLNAFTATE. [Concomitant]
     Active Substance: TOLNAFTATE
     Indication: PRODUCT USED FOR UNKNOWN INDICATION
     Dosage: UNK
     Route: 065
  38. ARACYTINE [Suspect]
     Active Substance: CYTARABINE
     Dosage: 200 MILLIGRAM/SQ. METER, ONCE A DAY, CYCLE
     Route: 065
  39. BASILIXIMAB [Suspect]
     Active Substance: BASILIXIMAB
     Indication: CHRONIC GRAFT VERSUS HOST DISEASE IN SKIN
  40. BUSULFAN. [Suspect]
     Active Substance: BUSULFAN
     Indication: PRODUCT USED FOR UNKNOWN INDICATION
     Dosage: 1.2 MILLIGRAM/KILOGRAM, FOUR TIMES/DAY
     Route: 065
  41. INFLIXIMAB [Suspect]
     Active Substance: INFLIXIMAB
     Indication: CHRONIC GRAFT VERSUS HOST DISEASE IN INTESTINE
  42. METHOTREXATE. [Suspect]
     Active Substance: METHOTREXATE
     Indication: PROPHYLAXIS AGAINST GRAFT VERSUS HOST DISEASE
  43. THYMOGLOBULINE [Suspect]
     Active Substance: LAPINE T-LYMPHOCYTE IMMUNE GLOBULIN
     Indication: PROPHYLAXIS AGAINST GRAFT VERSUS HOST DISEASE
  44. BASILIXIMAB [Suspect]
     Active Substance: BASILIXIMAB
     Indication: GRAFT VERSUS HOST DISEASE IN LUNG
  45. ETOPOSIDE. [Suspect]
     Active Substance: ETOPOSIDE
     Indication: ACUTE MYELOID LEUKAEMIA
     Dosage: 100 MILLIGRAM/SQ. METER, ONCE A DAY, CYCLE
     Route: 065
  46. IDARUBICIN [Suspect]
     Active Substance: IDARUBICIN
     Indication: ACUTE MYELOID LEUKAEMIA
     Dosage: 8 MILLIGRAM/SQ. METER, ONCE A DAY, D2, D4, J6
     Route: 065
  47. INFLIXIMAB [Suspect]
     Active Substance: INFLIXIMAB
     Indication: GRAFT VERSUS HOST DISEASE IN LUNG
  48. RITUXIMAB. [Suspect]
     Active Substance: RITUXIMAB
     Indication: IMMUNOSUPPRESSION
     Dosage: UNK
     Route: 065

REACTIONS (12)
  - Acute graft versus host disease in intestine [Unknown]
  - Gastrointestinal disorder [Unknown]
  - Off label use [Unknown]
  - Enamel anomaly [Unknown]
  - Acute graft versus host disease in skin [Unknown]
  - Bronchopulmonary aspergillosis [Recovered/Resolved]
  - Tooth disorder [Unknown]
  - Mucormycosis [Recovered/Resolved]
  - Skin lesion [Unknown]
  - Chronic graft versus host disease [Unknown]
  - Product use in unapproved indication [Unknown]
  - Tooth hypoplasia [Not Recovered/Not Resolved]
